FAERS Safety Report 4870266-2 (Version None)
Quarter: 2005Q4

REPORT INFORMATION
  Report Type: 
  Country: None (occurrence: None)
  Receive Date: 20051228
  Receipt Date: 20051214
  Transmission Date: 20060501
  Serious: Yes (Other)
  Sender: FDA-Public Use
  Company Number: JP200512002632

PATIENT
  Age: 51 Year
  Sex: Female

DRUGS (1)
  1. GEMZAR [Suspect]
     Dosage: INTRAVENOUS
     Route: 042

REACTIONS (1)
  - AMNESIA [None]
